FAERS Safety Report 10800657 (Version 2)
Quarter: 2015Q1

REPORT INFORMATION
  Report Type: Spontaneous
  Country: CA (occurrence: CA)
  Receive Date: 20150216
  Receipt Date: 20150309
  Transmission Date: 20150721
  Serious: Yes (Other)
  Sender: FDA-Public Use
  Company Number: CA-AMGEN-CANSP2015013159

PATIENT
  Age: 68 Year
  Sex: Female
  Weight: 112 kg

DRUGS (1)
  1. ENBREL [Suspect]
     Active Substance: ETANERCEPT
     Indication: RHEUMATOID ARTHRITIS
     Dosage: 50 MG, QWK
     Route: 058
     Dates: start: 20110608, end: 20150206

REACTIONS (2)
  - Anaemia [Not Recovered/Not Resolved]
  - Chronic lymphocytic leukaemia [Not Recovered/Not Resolved]

NARRATIVE: CASE EVENT DATE: 201411
